FAERS Safety Report 7888972-4 (Version None)
Quarter: 2011Q4

REPORT INFORMATION
  Report Type: 
  Country: None (occurrence: None)
  Receive Date: 20111103
  Receipt Date: 20111028
  Transmission Date: 20120403
  Serious: Yes (Disabling)
  Sender: FDA-Public Use
  Company Number: NO-AMGEN-NORSP2011017040

PATIENT
  Sex: Female

DRUGS (2)
  1. PROLIA [Suspect]
     Indication: OSTEOPOROSIS POSTMENOPAUSAL
     Dosage: UNK
     Dates: start: 20110310
  2. CALCIGRAN FORTE [Concomitant]

REACTIONS (17)
  - ACTIVITIES OF DAILY LIVING IMPAIRED [None]
  - ABDOMINAL PAIN UPPER [None]
  - POLLAKIURIA [None]
  - RASH [None]
  - MOUTH ULCERATION [None]
  - FLUSHING [None]
  - CATARACT [None]
  - HYPOAESTHESIA [None]
  - DEPRESSION [None]
  - NAUSEA [None]
  - WEIGHT DECREASED [None]
  - PYREXIA [None]
  - PRURITUS [None]
  - PAIN IN EXTREMITY [None]
  - HEADACHE [None]
  - UPPER RESPIRATORY TRACT INFECTION [None]
  - SKIN DISCOLOURATION [None]
